FAERS Safety Report 11226468 (Version 3)
Quarter: 2015Q3

REPORT INFORMATION
  Report Type: Spontaneous
  Country: BR (occurrence: BR)
  Receive Date: 20150629
  Receipt Date: 20150731
  Transmission Date: 20151125
  Serious: Yes (Death)
  Sender: FDA-Public Use
  Company Number: BR-BIOMARINAP-BR-2015-106726

PATIENT
  Sex: Male
  Weight: 36 kg

DRUGS (1)
  1. NAGLAZYME [Suspect]
     Active Substance: GALSULFASE
     Indication: MUCOPOLYSACCHARIDOSIS VI
     Dosage: 40 MG, QW
     Route: 042
     Dates: start: 20080901

REACTIONS (4)
  - Dyspnoea [Unknown]
  - Cardiac arrest [Fatal]
  - Chest pain [Unknown]
  - Pallor [Unknown]
